FAERS Safety Report 21154080 (Version 1)
Quarter: 2022Q3

REPORT INFORMATION
  Report Type: Report from Study
  Country: US (occurrence: None)
  Receive Date: 20220801
  Receipt Date: 20220801
  Transmission Date: 20221027
  Serious: Yes (Other)
  Sender: FDA-Public Use
  Company Number: US-Merck Healthcare KGaA-9339371

PATIENT
  Sex: Female

DRUGS (2)
  1. REBIF [Suspect]
     Active Substance: INTERFERON BETA-1A
     Indication: Multiple sclerosis
     Dates: start: 20110914, end: 20130125
  2. REBIF [Suspect]
     Active Substance: INTERFERON BETA-1A
     Dates: start: 20130607, end: 20140926

REACTIONS (3)
  - Diabetes mellitus [Unknown]
  - Cataract [Unknown]
  - Diabetic foot [Unknown]
